FAERS Safety Report 4388160-2 (Version None)
Quarter: 2004Q2

REPORT INFORMATION
  Report Type: 
  Country: None (occurrence: None)
  Receive Date: 20040625
  Receipt Date: 20040616
  Transmission Date: 20050107
  Serious: Yes (Death, Hospitalization, Other)
  Sender: FDA-Public Use
  Company Number: A-US2004-06360

PATIENT
  Age: 52 Year
  Sex: Female

DRUGS (19)
  1. TRACLEER [Suspect]
     Indication: PULMONARY HYPERTENSION
     Dosage: 62.5 + 125 MG, BID, ORAL
     Route: 048
     Dates: start: 20020911, end: 20021009
  2. TRACLEER [Suspect]
     Indication: PULMONARY HYPERTENSION
     Dosage: 62.5 + 125 MG, BID, ORAL
     Route: 048
     Dates: start: 20021010, end: 20030225
  3. TRACLEER [Suspect]
     Indication: PULMONARY HYPERTENSION
     Dosage: 62.5 + 125 MG, BID, ORAL
     Route: 048
     Dates: start: 20030401, end: 20030513
  4. PLAVIX [Concomitant]
  5. CLARITIN [Concomitant]
  6. POTASSIUM CHLORIDE [Concomitant]
  7. LASIX [Concomitant]
  8. ELAVIL [Concomitant]
  9. EFFEXOR [Concomitant]
  10. GLUCOPHAGE [Concomitant]
  11. MULTIVITAMINS (ASCORBIC ACID, FOLIC ACID, ERGOCALCIFEROL, NICOTINAMIDE [Concomitant]
  12. HYDROCHLORIDE, RETINOL, PANTHENOL) [Concomitant]
  13. FERROUS SULFATE TAB [Concomitant]
  14. LOPRESSOR (METOPROLOL TRATRATE) [Concomitant]
  15. GLUCOTROL XL [Concomitant]
  16. ACCOLATE [Concomitant]
  17. SYNTHROID [Concomitant]
  18. LIPITOR [Concomitant]
  19. CLONIDINE [Concomitant]

REACTIONS (9)
  - ANAEMIA [None]
  - ANGINA PECTORIS [None]
  - ASPARTATE AMINOTRANSFERASE INCREASED [None]
  - BLOOD ALKALINE PHOSPHATASE INCREASED [None]
  - CORONARY ARTERY DISEASE [None]
  - GAMMA-GLUTAMYLTRANSFERASE INCREASED [None]
  - LIVER FUNCTION TEST ABNORMAL [None]
  - MYOCARDIAL ISCHAEMIA [None]
  - PULMONARY ARTERIAL WEDGE PRESSURE INCREASED [None]
